FAERS Safety Report 10712363 (Version 1)
Quarter: 2015Q1

REPORT INFORMATION
  Report Type: Spontaneous
  Country: JP (occurrence: JP)
  Receive Date: 20150115
  Receipt Date: 20150115
  Transmission Date: 20150721
  Serious: Yes (Death, Hospitalization)
  Sender: FDA-Public Use
  Company Number: JP-BRISTOL-MYERS SQUIBB COMPANY-BMS-2015-001358

PATIENT
  Age: 63 Year
  Weight: 45 kg

DRUGS (3)
  1. ERBITUX [Suspect]
     Active Substance: CETUXIMAB
     Indication: LIP AND/OR ORAL CAVITY CANCER
     Dosage: 400 MG/M2, QWK
     Route: 041
     Dates: start: 20140617, end: 20140617
  2. CISPLATIN. [Concomitant]
     Active Substance: CISPLATIN
     Indication: LIP AND/OR ORAL CAVITY CANCER
     Dosage: 5 MG/M2, 5 TIMES/WK
     Route: 013
     Dates: start: 20140618, end: 20140818
  3. DOCETAXEL. [Concomitant]
     Active Substance: DOCETAXEL
     Indication: LIP AND/OR ORAL CAVITY CANCER
     Dosage: 60 MG/M2, QWK
     Route: 013
     Dates: start: 20140618, end: 20140811

REACTIONS (2)
  - Respiratory failure [Fatal]
  - Infection [Recovering/Resolving]

NARRATIVE: CASE EVENT DATE: 20140626
